FAERS Safety Report 16437958 (Version 1)
Quarter: 2019Q2

REPORT INFORMATION
  Report Type: Spontaneous
  Country: GB (occurrence: GB)
  Receive Date: 20190617
  Receipt Date: 20190617
  Transmission Date: 20190711
  Serious: Yes (Other)
  Sender: FDA-Public Use
  Company Number: GB-TEVA-2019-GB-1063254

PATIENT
  Age: 43 Year
  Sex: Female
  Weight: 68 kg

DRUGS (8)
  1. CLOBETASOL PROPIONATE. [Concomitant]
     Active Substance: CLOBETASOL PROPIONATE
     Dosage: APPLY THINLY TO THE AFFECTED AREA(S) ONCE OR TWICE
     Dates: start: 20190508
  2. SYMBICORT [Concomitant]
     Active Substance: BUDESONIDE\FORMOTEROL FUMARATE DIHYDRATE
     Dosage: 2 -4 PUFFS TWICE A DAY
     Dates: start: 20170320
  3. PREDNISOLONE. [Concomitant]
     Active Substance: PREDNISOLONE
     Dosage: 6 DOSAGE FORMS DAILY; 6 DAILY FOR 7 DAYS
     Dates: start: 20190508
  4. FLUCONAZOLE. [Suspect]
     Active Substance: FLUCONAZOLE
     Route: 048
     Dates: start: 20190508
  5. LIDOCAINE. [Concomitant]
     Active Substance: LIDOCAINE
     Dosage: APPLY 3-4 TIMES A DAY
     Dates: start: 20190508, end: 20190509
  6. HYDROMOL CREAM [Concomitant]
     Dosage: APPLY TO SKIN FREQUENTLY AND LIBERALLY
     Dates: start: 20190508
  7. CHLORPHENAMINE [Concomitant]
     Active Substance: CHLORPHENIRAMINE MALEATE
     Dosage: EVERY 4-6 HRS
     Dates: start: 20190504, end: 20190505
  8. SALBUTAMOL [Concomitant]
     Active Substance: ALBUTEROL
     Dosage: 1-2 PUFFS UP TO 4 TIMES DAILY AS NEEDED
     Dates: start: 20180406

REACTIONS (5)
  - Genital ulceration [Unknown]
  - Mouth ulceration [Unknown]
  - Stevens-Johnson syndrome [Unknown]
  - Paraesthesia oral [Unknown]
  - Erythema multiforme [Unknown]

NARRATIVE: CASE EVENT DATE: 20190508
